FAERS Safety Report 7349611-4 (Version None)
Quarter: 2011Q1

REPORT INFORMATION
  Report Type: 
  Country: None (occurrence: None)
  Receive Date: 20110218
  Receipt Date: 20100629
  Transmission Date: 20110831
  Serious: Yes (Hospitalization)
  Sender: FDA-Public Use
  Company Number: 2010022293

PATIENT
  Sex: Male
  Weight: 93.0327 kg

DRUGS (4)
  1. NEORAL [Suspect]
     Indication: KIDNEY TRANSPLANT REJECTION
     Dosage: (100 MG TWICE PER DAY ORAL)
     Route: 048
     Dates: start: 20080426, end: 20100208
  2. PROGRAF [Concomitant]
  3. STEROID TAPER (CORTICOSTEROID NOS) [Concomitant]
  4. PRIVIGEN [Suspect]
     Indication: TRANSPLANT REJECTION
     Dosage: (70 G INTRAVENOUS (NOT OTHERWISE SPECIFIED) )
     Route: 042
     Dates: start: 20100214, end: 20100215

REACTIONS (2)
  - HEADACHE [None]
  - VOMITING [None]
